FAERS Safety Report 12563120 (Version 2)
Quarter: 2016Q3

REPORT INFORMATION
  Report Type: Report from Study
  Country: JP (occurrence: JP)
  Receive Date: 20160715
  Receipt Date: 20160726
  Transmission Date: 20161109
  Serious: Yes (Other)
  Sender: FDA-Public Use
  Company Number: JP-009507513-01062443

PATIENT
  Age: 42 Year
  Sex: Male

DRUGS (21)
  1. NORVIR [Suspect]
     Active Substance: RITONAVIR
     Indication: HIV INFECTION
     Dosage: 600 MG, BID
     Route: 048
     Dates: start: 19961218, end: 19970924
  2. NORVIR [Suspect]
     Active Substance: RITONAVIR
     Dosage: 300 MG, BID
     Route: 048
     Dates: start: 19990819, end: 20000331
  3. NORVIR [Suspect]
     Active Substance: RITONAVIR
     Dosage: 200 MG, QD
     Route: 048
     Dates: start: 20110608
  4. ZERIT [Suspect]
     Active Substance: STAVUDINE
     Indication: HIV INFECTION
     Dosage: 30 MG, BID
     Route: 048
     Dates: start: 19970924, end: 19990818
  5. ZIAGEN [Concomitant]
     Active Substance: ABACAVIR SULFATE
     Indication: HIV INFECTION
     Dosage: 300 MG, BID
     Route: 048
     Dates: start: 19990819, end: 20001228
  6. VIDEX [Suspect]
     Active Substance: DIDANOSINE
     Dosage: 250 MG, UNKNOWN
     Route: 048
     Dates: start: 19960724, end: 19970924
  7. VIDEX [Suspect]
     Active Substance: DIDANOSINE
     Dosage: 300 MG, QD
     Route: 048
     Dates: start: 20001229, end: 20060410
  8. NORVIR [Suspect]
     Active Substance: RITONAVIR
     Dosage: 600 MG, QD
     Route: 048
     Dates: start: 20000401, end: 20001228
  9. NORVIR [Suspect]
     Active Substance: RITONAVIR
     Dosage: 200 MG, QD
     Route: 048
     Dates: start: 20060411, end: 20110608
  10. PROZEI [Suspect]
     Active Substance: AMPRENAVIR
     Indication: HIV INFECTION
     Dosage: 1500MG, QD
     Route: 048
     Dates: start: 20040401, end: 20051110
  11. ISENTRESS [Suspect]
     Active Substance: RALTEGRAVIR POTASSIUM
     Indication: HIV INFECTION
     Dosage: 800 MG, QD
     Route: 048
     Dates: start: 20070807
  12. VIDEX [Suspect]
     Active Substance: DIDANOSINE
     Dosage: 100 MG, BID
     Route: 048
     Dates: start: 19960314, end: 19960723
  13. KALETRA [Suspect]
     Active Substance: LOPINAVIR\RITONAVIR
     Indication: HIV INFECTION
     Dosage: 8 TABLETS DAILY
     Route: 048
     Dates: start: 20001229, end: 20060410
  14. EFAVIRENZ [Suspect]
     Active Substance: EFAVIRENZ
     Indication: HIV INFECTION
     Dosage: 200 MG, TID
     Route: 048
     Dates: start: 19990819, end: 20040331
  15. VIDEX [Suspect]
     Active Substance: DIDANOSINE
     Indication: HIV INFECTION
     Dosage: 100 MG, BID
     Route: 048
     Dates: start: 19951018, end: 19951206
  16. INVIRASE [Concomitant]
     Active Substance: SAQUINAVIR MESYLATE
     Indication: HIV INFECTION
     Dosage: 400 MG, BID
     Route: 048
     Dates: start: 19990819, end: 20001229
  17. ZERIT [Suspect]
     Active Substance: STAVUDINE
     Dosage: 80 MG, QD
     Route: 048
     Dates: start: 20001229, end: 20060410
  18. VIDEX [Suspect]
     Active Substance: DIDANOSINE
     Dosage: 200 MG, BID
     Route: 048
     Dates: start: 19951207, end: 19960313
  19. TRUVADA [Suspect]
     Active Substance: EMTRICITABINE\TENOFOVIR DISOPROXIL FUMARATE
     Indication: HIV INFECTION
     Dosage: 1 DOSAGE FORM, DIVIDED DOSE FREQUENCY UNKNOWN
     Route: 048
     Dates: start: 20060411
  20. PREZISTA [Suspect]
     Active Substance: DARUNAVIR ETHANOLATE
     Indication: HIV INFECTION
     Dosage: 600 MG, BID
     Route: 048
     Dates: start: 20061011
  21. INTELENCE [Suspect]
     Active Substance: ETRAVIRINE
     Indication: HIV INFECTION
     Dosage: 200 MG, BID
     Route: 048
     Dates: start: 20081011

REACTIONS (3)
  - Pancytopenia [Not Recovered/Not Resolved]
  - Hypertriglyceridaemia [Not Recovered/Not Resolved]
  - Hepatic cirrhosis [Not Recovered/Not Resolved]

NARRATIVE: CASE EVENT DATE: 20000322
